FAERS Safety Report 8169545-5 (Version None)
Quarter: 2012Q1

REPORT INFORMATION
  Report Type: 
  Country: None (occurrence: None)
  Receive Date: 20120222
  Receipt Date: 20120210
  Transmission Date: 20120608
  Serious: Yes (Other)
  Sender: FDA-Public Use
  Company Number: CRC-12-059

PATIENT
  Age: 88 Year
  Sex: Female
  Weight: 62 kg

DRUGS (10)
  1. ATIVAN [Concomitant]
  2. DECADRON [Concomitant]
  3. VERSED [Concomitant]
  4. PROPOFOL [Concomitant]
  5. SUCCINYLCHOLINE CHLORIDE [Concomitant]
  6. FOSPHENYTOIN [Concomitant]
  7. ETOMIDATE [Concomitant]
  8. FENTANYL [Concomitant]
  9. VECURONIUM BROMIDE [Suspect]
     Indication: DRUG THERAPY
     Dosage: 6 MG, TWICE, IV
     Route: 042
     Dates: start: 20120208
  10. MANNITOL [Concomitant]

REACTIONS (1)
  - DRUG INEFFECTIVE [None]
